FAERS Safety Report 6930125-8 (Version None)
Quarter: 2010Q3

REPORT INFORMATION
  Report Type: 
  Country: None (occurrence: None)
  Receive Date: 20100817
  Receipt Date: 20100817
  Transmission Date: 20110219
  Serious: No
  Sender: FDA-Public Use
  Company Number: None

PATIENT
  Sex: Female
  Weight: 68.0396 kg

DRUGS (2)
  1. FLECTOR [Suspect]
     Indication: ARTHRITIS
     Dosage: 1 PATCH EVERY 12 HR
     Dates: start: 20100722, end: 20100729
  2. FLECTOR [Suspect]
     Indication: TENDONITIS
     Dosage: 1 PATCH EVERY 12 HR
     Dates: start: 20100722, end: 20100729

REACTIONS (5)
  - COUGH [None]
  - LACRIMATION INCREASED [None]
  - OCULAR HYPERAEMIA [None]
  - OROPHARYNGEAL PAIN [None]
  - SKIN DISCOLOURATION [None]
